FAERS Safety Report 4629132-X (Version None)
Quarter: 2005Q2

REPORT INFORMATION
  Report Type: 
  Country: None (occurrence: None)
  Receive Date: 20050404
  Receipt Date: 20050404
  Transmission Date: 20051028
  Serious: Yes (Hospitalization, Disabling, Other)
  Sender: FDA-Public Use
  Company Number: None

PATIENT
  Age: 38 Year
  Sex: Female
  Weight: 58.9676 kg

DRUGS (2)
  1. VISTARIL [Suspect]
     Indication: PSYCHOTIC DISORDER
     Dosage: 75 MG ORALLY 3 TIMES PER DAY
     Route: 048
     Dates: start: 20050110
  2. CLONAZEPAM [Suspect]
     Indication: POST-TRAUMATIC STRESS DISORDER
     Dosage: 1MG AT NIGHT ONLY ORAL
     Route: 048

REACTIONS (8)
  - ANXIETY [None]
  - ARTHRALGIA [None]
  - BACK PAIN [None]
  - HEAD LAG [None]
  - NECK PAIN [None]
  - NERVOUSNESS [None]
  - TENSION [None]
  - TRISMUS [None]
